FAERS Safety Report 13209124 (Version 7)
Quarter: 2018Q4

REPORT INFORMATION
  Report Type: Spontaneous
  Country: DE (occurrence: DE)
  Receive Date: 20170209
  Receipt Date: 20181126
  Transmission Date: 20190204
  Serious: Yes (Other)
  Sender: FDA-Public Use
  Company Number: DE-PFIZER INC-2017058015

PATIENT
  Age: 57 Year
  Sex: Female

DRUGS (6)
  1. PLAVIX [Concomitant]
     Active Substance: CLOPIDOGREL BISULFATE
     Dosage: UNK
  2. NITRAZEPAM [Concomitant]
     Active Substance: NITRAZEPAM
     Indication: BURNING SENSATION
     Dosage: 20 MG, 3X/DAY
  3. LYRICA [Suspect]
     Active Substance: PREGABALIN
     Indication: NERVOUS SYSTEM DISORDER
     Dosage: 225 MG, DAILY (75 MG AT NOON, 150 MG IN THE EVENING)
     Dates: start: 2005
  4. BLOPRESS [Concomitant]
     Active Substance: CANDESARTAN CILEXETIL
     Dosage: UNK
  5. BELOC ZOK MITE [Concomitant]
     Active Substance: METOPROLOL SUCCINATE
     Dosage: UNK
  6. DELIX PLUS [Concomitant]
     Active Substance: HYDROCHLOROTHIAZIDE\RAMIPRIL
     Dosage: UNK (REPORTED AS 2.5)

REACTIONS (9)
  - Product use in unapproved indication [Unknown]
  - Mitral valve disease [Unknown]
  - Loss of consciousness [Unknown]
  - Pulmonary oedema [Unknown]
  - Headache [Unknown]
  - Hypertension [Unknown]
  - Myocardial infarction [Unknown]
  - Brown-Sequard syndrome [Unknown]
  - Heart rate increased [Unknown]

NARRATIVE: CASE EVENT DATE: 2005
